FAERS Safety Report 7277126-0 (Version None)
Quarter: 2011Q1

REPORT INFORMATION
  Report Type: 
  Country: None (occurrence: None)
  Receive Date: 20110202
  Receipt Date: 20110202
  Transmission Date: 20110831
  Serious: Yes (Other)
  Sender: FDA-Public Use
  Company Number: None

PATIENT
  Sex: Female

DRUGS (1)
  1. NUVARING [Suspect]
     Indication: CONTRACEPTION
     Dosage: 2 WK
     Dates: start: 20101202

REACTIONS (4)
  - MOOD SWINGS [None]
  - SUICIDAL IDEATION [None]
  - URTICARIA [None]
  - SKIN DISORDER [None]
